FAERS Safety Report 5601733-1 (Version None)
Quarter: 2008Q1

REPORT INFORMATION
  Report Type: 
  Country: None (occurrence: None)
  Receive Date: 20080124
  Receipt Date: 20080114
  Transmission Date: 20080703
  Serious: Yes (Hospitalization)
  Sender: FDA-Public Use
  Company Number: US-ABBOTT-07P-163-0423742-00

PATIENT
  Sex: Female
  Weight: 57.658 kg

DRUGS (2)
  1. HUMIRA [Suspect]
     Indication: CROHN'S DISEASE
     Route: 058
     Dates: start: 20071003, end: 20080109
  2. SERTRALINE [Concomitant]
     Indication: DEPRESSION

REACTIONS (6)
  - ABDOMINAL PAIN [None]
  - ACCIDENTAL EXPOSURE [None]
  - CROHN'S DISEASE [None]
  - INTESTINAL OBSTRUCTION [None]
  - NAUSEA [None]
  - VOMITING [None]
